FAERS Safety Report 5903764-0 (Version None)
Quarter: 2008Q3

REPORT INFORMATION
  Report Type: 
  Country: None (occurrence: None)
  Receive Date: 20080930
  Receipt Date: 20080917
  Transmission Date: 20090109
  Serious: Yes (Other)
  Sender: FDA-Public Use
  Company Number: US-ELI_LILLY_AND_COMPANY-US200809004173

PATIENT
  Sex: Female
  Weight: 81.633 kg

DRUGS (6)
  1. BYETTA [Suspect]
     Indication: TYPE 2 DIABETES MELLITUS
     Dosage: 5 UG, 2/D
     Route: 058
     Dates: start: 20071201, end: 20080901
  2. METFORMIN HCL [Concomitant]
  3. AMARYL [Concomitant]
  4. PREVACID [Concomitant]
  5. VYTORIN [Concomitant]
  6. ZYRTEC [Concomitant]

REACTIONS (1)
  - PANCREATITIS [None]
